FAERS Safety Report 8116757-2 (Version None)
Quarter: 2011Q4

REPORT INFORMATION
  Report Type: 
  Country: None (occurrence: None)
  Receive Date: 20111227
  Receipt Date: 20110907
  Transmission Date: 20120403
  Serious: No
  Sender: FDA-Public Use
  Company Number: PHEH2011US03691

PATIENT
  Sex: Female

DRUGS (3)
  1. MOTRIN [Concomitant]
  2. CLARINEX-D (DESLORATADINE, PSEUDOEPHEDRINE SULFATE) [Concomitant]
  3. GILENYA [Suspect]
     Dosage: 0.5 MG, QD, ORAL
     Route: 048

REACTIONS (2)
  - ARTHRALGIA [None]
  - MUSCULOSKELETAL PAIN [None]
